FAERS Safety Report 24690911 (Version 1)
Quarter: 2024Q4

REPORT INFORMATION
  Report Type: Spontaneous
  Country: US (occurrence: US)
  Receive Date: 20241203
  Receipt Date: 20241203
  Transmission Date: 20250114
  Serious: No
  Sender: PAREXEL
  Company Number: US-NOVEN PHARMACEUTICALS, INC.-2023-NOV-US001370

PATIENT
  Age: 55 Year
  Sex: Female

DRUGS (3)
  1. ESTRADIOL [Suspect]
     Active Substance: ESTRADIOL
     Indication: Product used for unknown indication
     Dosage: 0.05 MG, UNK
     Route: 062
  2. ESTRADIOL [Suspect]
     Active Substance: ESTRADIOL
     Dosage: 0.05 MG, UNK
     Route: 062
     Dates: start: 202308
  3. ESTRADIOL [Suspect]
     Active Substance: ESTRADIOL
     Dosage: 0.025 MG, UNK
     Route: 062

REACTIONS (4)
  - Exposure via direct contact [Unknown]
  - Device issue [Unknown]
  - Device adhesion issue [Unknown]
  - No adverse event [Unknown]

NARRATIVE: CASE EVENT DATE: 20230801
